FAERS Safety Report 10036218 (Version 1)
Quarter: 2014Q1

REPORT INFORMATION
  Report Type: Spontaneous
  Country: US (occurrence: US)
  Receive Date: 20140325
  Receipt Date: 20140325
  Transmission Date: 20141002
  Serious: Yes (Hospitalization)
  Sender: FDA-Public Use
  Company Number: US-B.I. PHARMACEUTICALS,INC./RIDGEFIELD-2014-BI-11998BP

PATIENT
  Age: 69 Year
  Sex: Male
  Weight: 136.82 kg

DRUGS (1)
  1. COMBIVENT [Suspect]
     Indication: DYSPNOEA
     Dosage: FORMULATION: INHALATION AEROSOL;STRENGTH: 18 MCG / 103 MCG; DAILY DOSE: 54 MCG/309 MCG
     Route: 055
     Dates: start: 2004, end: 201403

REACTIONS (3)
  - Pneumonia [Recovered/Resolved]
  - Cellulitis [Recovered/Resolved]
  - Off label use [Unknown]
